FAERS Safety Report 23631104 (Version 1)
Quarter: 2024Q1

REPORT INFORMATION
  Report Type: Spontaneous
  Country: DE (occurrence: DE)
  Receive Date: 20240314
  Receipt Date: 20240314
  Transmission Date: 20240410
  Serious: Yes (Life-Threatening, Hospitalization, Other)
  Sender: FDA-Public Use
  Company Number: None

PATIENT
  Age: 54 Year
  Sex: Male

DRUGS (1)
  1. TESTOSTERONE [Suspect]
     Active Substance: TESTOSTERONE
     Indication: Androgen deficiency
     Dosage: RATIOPHARM 1000 MG/4 ML INJECTION SOLUTION
     Route: 030
     Dates: start: 20240219

REACTIONS (2)
  - Pulmonary embolism [Unknown]
  - Cough [Unknown]

NARRATIVE: CASE EVENT DATE: 20240219
